FAERS Safety Report 5056205-2 (Version None)
Quarter: 2006Q3

REPORT INFORMATION
  Report Type: 
  Country: None (occurrence: None)
  Receive Date: 20060717
  Receipt Date: 20060704
  Transmission Date: 20061208
  Serious: Yes (Hospitalization, Other)
  Sender: FDA-Public Use
  Company Number: 2006084091

PATIENT
  Age: 59 Year
  Sex: Female

DRUGS (1)
  1. DOSTINEX [Suspect]
     Indication: PROLACTINOMA
     Dosage: (1 IN 1 WK), ORAL
     Route: 048
     Dates: start: 20020601, end: 20060619

REACTIONS (6)
  - ANXIETY [None]
  - AUTOMATISM [None]
  - DELIRIUM [None]
  - DELUSION [None]
  - DEPERSONALISATION [None]
  - HALLUCINATION, AUDITORY [None]
